FAERS Safety Report 24006908 (Version 2)
Quarter: 2024Q3

REPORT INFORMATION
  Report Type: Report from Study
  Country: US (occurrence: US)
  Receive Date: 20240624
  Receipt Date: 20240802
  Transmission Date: 20241016
  Serious: Yes (Life-Threatening, Hospitalization, Other)
  Sender: CSL BEHRING
  Company Number: US-BEH-2024173783

PATIENT
  Age: 45 Year
  Sex: Male
  Weight: 186.4 kg

DRUGS (9)
  1. BERINERT [Suspect]
     Active Substance: HUMAN C1-ESTERASE INHIBITOR
     Indication: Hereditary angioedema
     Dosage: 4000 IU/KG, BIW
     Route: 058
     Dates: end: 20240611
  2. BERINERT [Suspect]
     Active Substance: HUMAN C1-ESTERASE INHIBITOR
     Indication: Prophylaxis
     Dosage: 5073 IU/KG, BIW
     Route: 058
  3. BERINERT [Suspect]
     Active Substance: HUMAN C1-ESTERASE INHIBITOR
     Dosage: 60 IU/KG, BIW
     Route: 065
  4. BERINERT [Suspect]
     Active Substance: HUMAN C1-ESTERASE INHIBITOR
     Dosage: 11000 IU/KG, BIW
     Route: 058
  5. BERINERT [Suspect]
     Active Substance: HUMAN C1-ESTERASE INHIBITOR
     Indication: Hereditary angioedema
     Dosage: 5073 IU/KG, BIW
     Route: 065
  6. BERINERT [Suspect]
     Active Substance: HUMAN C1-ESTERASE INHIBITOR
     Indication: Prophylaxis
  7. TAKHZYRO [Concomitant]
     Active Substance: LANADELUMAB-FLYO
     Indication: Hereditary angioedema
  8. TAKHZYRO [Concomitant]
     Active Substance: LANADELUMAB-FLYO
     Indication: Hereditary angioedema
  9. EPINEPHRINE [Concomitant]
     Active Substance: EPINEPHRINE

REACTIONS (5)
  - Hereditary angioedema [Recovered/Resolved]
  - Hereditary angioedema [Unknown]
  - Hereditary angioedema [Recovering/Resolving]
  - Insurance issue [Unknown]
  - Hereditary angioedema [Unknown]

NARRATIVE: CASE EVENT DATE: 20240610
